FAERS Safety Report 12769932 (Version 1)
Quarter: 2016Q3

REPORT INFORMATION
  Report Type: Spontaneous
  Country: GB (occurrence: GB)
  Receive Date: 20160922
  Receipt Date: 20160922
  Transmission Date: 20161109
  Serious: Yes (Hospitalization)
  Sender: FDA-Public Use
  Company Number: GB-CONCORDIA PHARMACEUTICALS INC.-GSH201609-004702

PATIENT
  Age: 84 Year
  Sex: Female

DRUGS (13)
  1. FERROUS FUMARATE [Concomitant]
     Active Substance: FERROUS FUMARATE
  2. SODIUM PIDOLATE [Concomitant]
  3. CALCICHEW D3 FORTE [Concomitant]
     Active Substance: CALCIUM\CHOLECALCIFEROL
  4. AMITRIPTYLINE [Suspect]
     Active Substance: AMITRIPTYLINE
     Indication: DEPRESSION
     Route: 048
  5. CLOPIDOGREL [Concomitant]
     Active Substance: CLOPIDOGREL BISULFATE
  6. MEMANTINE. [Concomitant]
     Active Substance: MEMANTINE
  7. METHOTREXATE. [Concomitant]
     Active Substance: METHOTREXATE
  8. PARACETAMOL [Concomitant]
     Active Substance: ACETAMINOPHEN
  9. COLECALCIFEROL [Concomitant]
     Active Substance: CHOLECALCIFEROL
  10. LANSOPRAZOLE. [Concomitant]
     Active Substance: LANSOPRAZOLE
  11. FOLIC ACID. [Concomitant]
     Active Substance: FOLIC ACID
  12. HYDROXYCHLOROQUINE [Suspect]
     Active Substance: HYDROXYCHLOROQUINE
     Indication: RHEUMATOID ARTHRITIS
     Route: 048
     Dates: end: 20160425
  13. PREDNISOLONE. [Concomitant]
     Active Substance: PREDNISOLONE

REACTIONS (4)
  - Atrioventricular block complete [Recovered/Resolved with Sequelae]
  - Torsade de pointes [Recovered/Resolved]
  - Bradycardia [Recovered/Resolved with Sequelae]
  - Circulatory collapse [Recovered/Resolved]

NARRATIVE: CASE EVENT DATE: 201604
